FAERS Safety Report 11525761 (Version 4)
Quarter: 2016Q1

REPORT INFORMATION
  Report Type: Report from Study
  Country: US (occurrence: US)
  Receive Date: 20150918
  Receipt Date: 20160301
  Transmission Date: 20160525
  Serious: Yes (Hospitalization, Disabling, Other)
  Sender: FDA-Public Use
  Company Number: US-BRISTOL-MYERS SQUIBB COMPANY-BMS-2015-061522

PATIENT
  Age: 61 Year
  Sex: Female
  Weight: 52.2 kg

DRUGS (9)
  1. NIVOLUMAB [Suspect]
     Active Substance: NIVOLUMAB
     Indication: NON-SMALL CELL LUNG CANCER
     Dosage: 157 MG, UNK
     Route: 065
     Dates: start: 20141020, end: 20150805
  2. TYLENOL [Concomitant]
     Active Substance: ACETAMINOPHEN
     Indication: PRODUCTIVE COUGH
     Dosage: 650 MG, QD
     Route: 048
     Dates: start: 20141226
  3. ZOLPIDEM [Concomitant]
     Active Substance: ZOLPIDEM\ZOLPIDEM TARTRATE
     Indication: PRODUCTIVE COUGH
     Dosage: 5 MG, QD
     Route: 048
     Dates: start: 20140522
  4. PEPTO BISMOL                       /00139305/ [Concomitant]
     Indication: DIARRHOEA
     Dosage: 1 DF, UNK
     Route: 048
     Dates: start: 20150819
  5. NIVOLUMAB [Suspect]
     Active Substance: NIVOLUMAB
     Dosage: 157 MG, UNK
     Route: 065
     Dates: start: 20150923
  6. METOPROLOL. [Concomitant]
     Active Substance: METOPROLOL
     Indication: PRODUCT USED FOR UNKNOWN INDICATION
     Dosage: 25 MG, QD
     Route: 048
     Dates: start: 20140401
  7. BUDESONIDE. [Concomitant]
     Active Substance: BUDESONIDE
     Indication: COUGH
     Dosage: 0.5 MG, UNK
     Route: 048
     Dates: start: 20150730
  8. PROMETHAZINE - CODEINE             /01129901/ [Concomitant]
     Indication: BRONCHITIS
     Dosage: 1 DF, QD
     Route: 048
     Dates: start: 20150105
  9. LEVOTHYROXINE. [Concomitant]
     Active Substance: LEVOTHYROXINE
     Indication: PRODUCT USED FOR UNKNOWN INDICATION
     Dosage: 100 ?G, QD
     Route: 048
     Dates: start: 20140401

REACTIONS (3)
  - Hyponatraemia [Recovered/Resolved with Sequelae]
  - Adrenal insufficiency [Recovered/Resolved with Sequelae]
  - Hypoglycaemia [Recovered/Resolved]

NARRATIVE: CASE EVENT DATE: 20150901
